FAERS Safety Report 23449277 (Version 1)
Quarter: 2024Q1

REPORT INFORMATION
  Report Type: Spontaneous
  Country: US (occurrence: US)
  Receive Date: 20240129
  Receipt Date: 20240129
  Transmission Date: 20240410
  Serious: No
  Sender: FDA-Public Use
  Company Number: US-GSKCCFUS-Case-01910114_AE-106430

PATIENT
  Age: 49 Year
  Sex: Female

DRUGS (1)
  1. BENLYSTA [Suspect]
     Active Substance: BELIMUMAB
     Indication: Product used for unknown indication
     Dosage: UNK
     Dates: start: 202309

REACTIONS (5)
  - Dental implantation [Unknown]
  - Influenza [Unknown]
  - Pyrexia [Unknown]
  - Pharyngitis streptococcal [Unknown]
  - Illness [Unknown]

NARRATIVE: CASE EVENT DATE: 20231201
